FAERS Safety Report 14383370 (Version 1)
Quarter: 2018Q1

REPORT INFORMATION
  Report Type: Spontaneous
  Country: TR (occurrence: TR)
  Receive Date: 20180115
  Receipt Date: 20180115
  Transmission Date: 20180509
  Serious: Yes (Other)
  Sender: FDA-Public Use
  Company Number: TR-ORION CORPORATION ORION PHARMA-ENTC2018-0013

PATIENT
  Age: 77 Year
  Sex: Male

DRUGS (5)
  1. STALEVO [Suspect]
     Active Substance: CARBIDOPA\ENTACAPONE\LEVODOPA
     Dosage: STRENGTH: 100/25/200 MG
     Route: 048
     Dates: start: 20180101
  2. PEXOLA [Concomitant]
     Active Substance: PRAMIPEXOLE DIHYDROCHLORIDE
     Route: 065
  3. STALEVO [Suspect]
     Active Substance: CARBIDOPA\ENTACAPONE\LEVODOPA
     Indication: PARKINSON^S DISEASE
     Dosage: STRENGTH: 100/25/200 MG
     Route: 048
  4. MADOPAR [Concomitant]
     Active Substance: BENSERAZIDE HYDROCHLORIDE\LEVODOPA
     Route: 065
  5. PK-MERZ [Concomitant]
     Active Substance: AMANTADINE
     Route: 065

REACTIONS (8)
  - Fall [Unknown]
  - Drug ineffective [Recovered/Resolved]
  - Product quality issue [Unknown]
  - Speech disorder [Recovered/Resolved]
  - Product counterfeit [Unknown]
  - Gait disturbance [Recovered/Resolved]
  - Wrong technique in product usage process [Unknown]
  - Limb injury [Unknown]
